FAERS Safety Report 16095305 (Version 5)
Quarter: 2019Q2

REPORT INFORMATION
  Report Type: Report from Study
  Country: US (occurrence: US)
  Receive Date: 20190320
  Receipt Date: 20190522
  Transmission Date: 20190711
  Serious: Yes (Hospitalization, Other)
  Sender: FDA-Public Use
  Company Number: US-GILEAD-2019-0397388

PATIENT
  Age: 7 Year
  Sex: Male
  Weight: 19.5 kg

DRUGS (5)
  1. AMBRISENTAN [Suspect]
     Active Substance: AMBRISENTAN
     Indication: PULMONARY ARTERIAL HYPERTENSION
     Dosage: 5 MG, QD
     Route: 048
     Dates: start: 20190211
  2. REVATIO [Concomitant]
     Active Substance: SILDENAFIL CITRATE
  3. REMODULIN [Suspect]
     Active Substance: TREPROSTINIL
     Indication: PULMONARY ARTERIAL HYPERTENSION
     Dosage: 28 NG/KG/MIN, CONTINUOUS
     Route: 042
     Dates: start: 20131023
  4. REMODULIN [Suspect]
     Active Substance: TREPROSTINIL
     Dosage: UNK
     Route: 042
  5. TADALAFIL. [Concomitant]
     Active Substance: TADALAFIL

REACTIONS (8)
  - Injection site erythema [Unknown]
  - Haemorrhage [Not Recovered/Not Resolved]
  - Swelling face [Unknown]
  - Off label use [Not Recovered/Not Resolved]
  - Oxygen saturation decreased [Unknown]
  - Pyrexia [Unknown]
  - Injection site infection [Unknown]
  - Acrochordon [Not Recovered/Not Resolved]

NARRATIVE: CASE EVENT DATE: 20190211
